FAERS Safety Report 8063410-X (Version None)
Quarter: 2012Q1

REPORT INFORMATION
  Report Type: 
  Country: None (occurrence: None)
  Receive Date: 20120123
  Receipt Date: 20120116
  Transmission Date: 20120608
  Serious: Yes (Death, Life-Threatening)
  Sender: FDA-Public Use
  Company Number: FR-SP-2011-10437

PATIENT
  Sex: Male

DRUGS (6)
  1. INEGY (EZETIMIBE - SIMVASTATINE) [Concomitant]
  2. IMMUCYST [Suspect]
     Indication: BLADDER CANCER
     Route: 043
     Dates: start: 20110509, end: 20110509
  3. ZANIDIP (LERCANIDIPINE) [Concomitant]
  4. PERINDOPRIL ERBUMINE [Concomitant]
  5. KARDEGIC (ACETYLSALICYLATE) [Concomitant]
  6. XATRAL (ALFUZOSINE) [Concomitant]

REACTIONS (6)
  - HAEMORRHAGE [None]
  - RESPIRATORY DISTRESS [None]
  - SHOCK [None]
  - BOVINE TUBERCULOSIS [None]
  - PYREXIA [None]
  - RENAL FAILURE [None]
